FAERS Safety Report 17801200 (Version 1)
Quarter: 2020Q2

REPORT INFORMATION
  Report Type: Spontaneous
  Country: US (occurrence: US)
  Receive Date: 20200519
  Receipt Date: 20200519
  Transmission Date: 20200714
  Serious: Yes (Hospitalization, Other)
  Sender: FDA-Public Use
  Company Number: US-DRREDDYS-USA/USA/20/0122992

PATIENT
  Age: 13 Year
  Sex: Female

DRUGS (2)
  1. SERTRALINE [Suspect]
     Active Substance: SERTRALINE HYDROCHLORIDE
     Indication: PRODUCT USED FOR UNKNOWN INDICATION
     Dosage: 13 OF 50 MG PILLS SERTRALINE MISSING
  2. LAMOTRIGINE TABLETS [Suspect]
     Active Substance: LAMOTRIGINE
     Indication: PRODUCT USED FOR UNKNOWN INDICATION
     Route: 048

REACTIONS (4)
  - Drug screen false positive [Unknown]
  - Intentional overdose [Recovered/Resolved]
  - Unresponsive to stimuli [Recovered/Resolved]
  - Suicide attempt [Unknown]
